FAERS Safety Report 9271698 (Version 1)
Quarter: 2013Q2

REPORT INFORMATION
  Report Type: Spontaneous
  Country: US (occurrence: US)
  Receive Date: 20130506
  Receipt Date: 20130506
  Transmission Date: 20140414
  Serious: Yes (Other)
  Sender: FDA-Public Use
  Company Number: US-PFIZER INC-2013135188

PATIENT
  Age: 14 Year
  Sex: Male
  Weight: 64.4 kg

DRUGS (4)
  1. CYTOMEL [Suspect]
     Indication: AUTOIMMUNE THYROIDITIS
     Dosage: 10 UG, 1X/DAY
     Dates: start: 20130426
  2. LEVOXYL [Suspect]
     Indication: AUTOIMMUNE THYROIDITIS
     Dosage: 25 MCG AND 37.5 MCG, ALTERNATE DAY
     Route: 048
     Dates: start: 201202, end: 201302
  3. ARMOUR THYROID [Suspect]
     Indication: AUTOIMMUNE THYROIDITIS
     Dosage: 15 MG, DAILY
     Route: 048
     Dates: start: 20130228, end: 20130425
  4. CLARINEX [Concomitant]
     Indication: HYPERSENSITIVITY
     Dosage: 10 UG, 1X/DAY

REACTIONS (3)
  - Aggression [Not Recovered/Not Resolved]
  - Anger [Not Recovered/Not Resolved]
  - Abnormal behaviour [Not Recovered/Not Resolved]
